FAERS Safety Report 5280054-3 (Version None)
Quarter: 2007Q1

REPORT INFORMATION
  Report Type: 
  Country: None (occurrence: None)
  Receive Date: 20061229
  Receipt Date: 20060728
  Transmission Date: 20070707
  Serious: Yes (Hospitalization)
  Sender: FDA-Public Use
  Company Number: 2006UW15270

PATIENT
  Age: 47 Year
  Sex: Male

DRUGS (4)
  1. CRESTOR [Suspect]
  2. DIOVAN [Concomitant]
  3. LANTUS [Concomitant]
  4. ZETIA [Concomitant]

REACTIONS (1)
  - RHABDOMYOLYSIS [None]
